FAERS Safety Report 15618558 (Version 1)
Quarter: 2018Q4

REPORT INFORMATION
  Report Type: Spontaneous
  Country: US (occurrence: US)
  Receive Date: 20181114
  Receipt Date: 20181114
  Transmission Date: 20190205
  Serious: No
  Sender: FDA-Public Use
  Company Number: US-PFIZER INC-2018455017

PATIENT
  Age: 60 Year
  Sex: Female

DRUGS (4)
  1. CLEOCIN T [Concomitant]
     Active Substance: CLINDAMYCIN PHOSPHATE
     Dosage: 1 % LOTION APPLY 2 TIMES DAILY TO AFFECTED AREA
  2. KENALOG [Concomitant]
     Active Substance: TRIAMCINOLONE ACETONIDE
     Dosage: 0.1% LOTION APPLY 2 TIMES DAILY AS NEEDED TO AFFECTED AREA
  3. XELJANZ [Suspect]
     Active Substance: TOFACITINIB CITRATE
     Dosage: 5 MG, 2X/DAY
  4. METROCREAM [Interacting]
     Active Substance: METRONIDAZOLE
     Dosage: 0.75 APPLY 2 TIMES DAILY AS NEEDED TO AFFECTED AREA % CREAM

REACTIONS (1)
  - Drug interaction [Unknown]
